FAERS Safety Report 8862842 (Version 4)
Quarter: 2013Q1

REPORT INFORMATION
  Report Type: Spontaneous
  Country: US (occurrence: US)
  Receive Date: 20121026
  Receipt Date: 20130311
  Transmission Date: 20140127
  Serious: Yes (Hospitalization)
  Sender: FDA-Public Use
  Company Number: US-GLAXOSMITHKLINE-A0998669A

PATIENT
  Age: 49 Year
  Sex: Female

DRUGS (12)
  1. FLOLAN [Suspect]
     Indication: PRODUCT USED FOR UNKNOWN INDICATION
     Dosage: 33.7NGKM CONTINUOUS
     Route: 042
     Dates: start: 20120208
  2. COUMADIN [Concomitant]
  3. REVATIO [Concomitant]
  4. ZOFRAN [Concomitant]
  5. IMODIUM [Concomitant]
  6. DEMADEX [Concomitant]
  7. TYLENOL [Concomitant]
  8. POTASSIUM [Concomitant]
  9. PROZAC [Concomitant]
  10. ALDACTONE [Concomitant]
  11. MULTIVITAMIN [Concomitant]
  12. LETAIRIS [Concomitant]

REACTIONS (9)
  - Fluid overload [Unknown]
  - Palpitations [Unknown]
  - Blood urea increased [Not Recovered/Not Resolved]
  - Blood creatinine increased [Not Recovered/Not Resolved]
  - Headache [Not Recovered/Not Resolved]
  - Pain in jaw [Not Recovered/Not Resolved]
  - Catheter site erythema [Not Recovered/Not Resolved]
  - Flushing [Not Recovered/Not Resolved]
  - Syncope [Unknown]
